FAERS Safety Report 25744737 (Version 1)
Quarter: 2025Q3

REPORT INFORMATION
  Report Type: Spontaneous
  Country: US (occurrence: US)
  Receive Date: 20250901
  Receipt Date: 20250901
  Transmission Date: 20251020
  Serious: No
  Sender: SANDOZ
  Company Number: US-SANDOZ-SDZ2025US062849

PATIENT

DRUGS (1)
  1. ANECTINE [Suspect]
     Active Substance: SUCCINYLCHOLINE CHLORIDE
     Indication: Product used for unknown indication
     Route: 065

REACTIONS (1)
  - Product storage error [Unknown]
